FAERS Safety Report 7297788-1 (Version None)
Quarter: 2011Q1

REPORT INFORMATION
  Report Type: 
  Country: None (occurrence: None)
  Receive Date: 20110214
  Receipt Date: 20110214
  Transmission Date: 20110831
  Serious: Yes (Hospitalization)
  Sender: FDA-Public Use
  Company Number: None

PATIENT
  Age: 90 Year
  Sex: Male
  Weight: 106.5 kg

DRUGS (3)
  1. PRADAXA [Suspect]
     Indication: ATRIAL FIBRILLATION
     Dosage: 75 MG TWICE A DAY PO
     Route: 048
     Dates: start: 20110202, end: 20110205
  2. PRADAXA [Suspect]
     Indication: CEREBROVASCULAR ACCIDENT
     Dosage: 75 MG TWICE A DAY PO
     Route: 048
     Dates: start: 20110202, end: 20110205
  3. PRADAXA [Suspect]
     Indication: PROPHYLAXIS
     Dosage: 75 MG TWICE A DAY PO
     Route: 048
     Dates: start: 20110202, end: 20110205

REACTIONS (11)
  - FALL [None]
  - HAEMATOCHEZIA [None]
  - PLATELET COUNT DECREASED [None]
  - RECTAL HAEMORRHAGE [None]
  - ARTHRALGIA [None]
  - FEMUR FRACTURE [None]
  - HAEMOGLOBIN DECREASED [None]
  - HAEMATOCRIT DECREASED [None]
  - INTERNATIONAL NORMALISED RATIO INCREASED [None]
  - DIZZINESS [None]
  - INTESTINAL MASS [None]
